FAERS Safety Report 4684810-1 (Version None)
Quarter: 2005Q2

REPORT INFORMATION
  Report Type: 
  Country: None (occurrence: None)
  Receive Date: 20050606
  Receipt Date: 20050218
  Transmission Date: 20051028
  Serious: No
  Sender: FDA-Public Use
  Company Number: USA050291141

PATIENT
  Age: 80 Year
  Sex: Male

DRUGS (1)
  1. ALIMTA [Suspect]
     Indication: NON-SMALL CELL LUNG CANCER
     Dates: start: 20050214

REACTIONS (3)
  - CHAPPED LIPS [None]
  - LIP DRY [None]
  - PHARYNGOLARYNGEAL PAIN [None]
